FAERS Safety Report 8421281-3 (Version None)
Quarter: 2012Q2

REPORT INFORMATION
  Report Type: 
  Country: None (occurrence: None)
  Receive Date: 20120323
  Receipt Date: 20110602
  Transmission Date: 20120825
  Serious: Yes (Hospitalization, Other)
  Sender: FDA-Public Use
  Company Number: 163-21880-11022242

PATIENT
  Age: 80 Year
  Sex: Female
  Weight: 61.5531 kg

DRUGS (17)
  1. VELCADE [Concomitant]
  2. ALBUTEROL [Concomitant]
  3. COUMADIN [Concomitant]
  4. CALCIUM CARBONATE [Concomitant]
  5. SENNA PLUS (COLOXYL WITH SENNA) [Concomitant]
  6. ASPIRIN [Concomitant]
  7. LACTULOSE [Concomitant]
  8. COZAAR [Concomitant]
  9. PRILOSEC [Concomitant]
  10. VITAMIN D [Concomitant]
  11. AREDIA [Concomitant]
  12. CHERATUSSIN AC (CHERATUSSIN AC) [Concomitant]
  13. DEXAMETHASONE (DEXAMETHASONE) [Concomitant]
  14. ACETAMINOPHEN [Concomitant]
  15. REVLIMID [Suspect]
     Indication: MULTIPLE MYELOMA
     Dosage: 15 MG, DAILY FOR 21 DAYS, PO
     Route: 048
     Dates: start: 20100308
  16. ACYCLOVIR [Concomitant]
  17. NEUPOGEN [Concomitant]

REACTIONS (3)
  - WHITE BLOOD CELL COUNT DECREASED [None]
  - INFLUENZA [None]
  - PYREXIA [None]
